FAERS Safety Report 9130394 (Version 1)
Quarter: 2013Q1

REPORT INFORMATION
  Report Type: Spontaneous
  Country: DE (occurrence: DE)
  Receive Date: 20130228
  Receipt Date: 20130228
  Transmission Date: 20140127
  Serious: Yes (Other)
  Sender: FDA-Public Use
  Company Number: GXKR2013DE000963

PATIENT
  Sex: 0

DRUGS (2)
  1. ATENOLOL [Suspect]
     Dosage: MATERNAL DOSE: 25 MG/D, 0.-39.4 GW
     Route: 064
  2. FOLIC ACID [Concomitant]
     Dosage: MATERNAL DOSE: 0.4 MG/D ALREADY PRECONCEPTIONAL, 0.-39.4 GW
     Route: 064

REACTIONS (4)
  - Small for dates baby [Recovered/Resolved]
  - Hypoglycaemia neonatal [Recovered/Resolved]
  - Bradycardia neonatal [Recovered/Resolved]
  - Hydrocele [Unknown]
